FAERS Safety Report 24686133 (Version 1)
Quarter: 2024Q4

REPORT INFORMATION
  Report Type: Spontaneous
  Country: US (occurrence: US)
  Receive Date: 20241202
  Receipt Date: 20241202
  Transmission Date: 20250115
  Serious: No
  Sender: FRESENIUS KABI
  Company Number: US-FreseniusKabi-FK202417738

PATIENT
  Age: 65 Year
  Sex: Male
  Weight: 119 kg

DRUGS (7)
  1. HEPARIN SODIUM [Suspect]
     Active Substance: HEPARIN SODIUM
     Indication: Anticoagulant therapy
     Dosage: ROA: IV INITIAL DOSE/SUBSEQUENT DOSES HEART LUNG ?MACHINE?DOSE: 3.5MG/KG INITIAL/ SUBSEQUENT DOSES 1
     Dates: start: 20241121, end: 20241121
  2. UNSPECIFIED INGREDIENT [Concomitant]
     Active Substance: UNSPECIFIED INGREDIENT
  3. KLONOPIN [Concomitant]
     Active Substance: CLONAZEPAM
  4. LISINOPRIL [Concomitant]
     Active Substance: LISINOPRIL
  5. METFORMIN [Concomitant]
     Active Substance: METFORMIN HYDROCHLORIDE
  6. NP THYROID [Concomitant]
     Active Substance: LEVOTHYROXINE\LIOTHYRONINE
  7. PROZAC [Concomitant]
     Active Substance: FLUOXETINE HYDROCHLORIDE

REACTIONS (1)
  - Therapeutic product effect decreased [Recovered/Resolved]

NARRATIVE: CASE EVENT DATE: 20241121
